FAERS Safety Report 8347235-3 (Version None)
Quarter: 2012Q2

REPORT INFORMATION
  Report Type: 
  Country: None (occurrence: None)
  Receive Date: 20120509
  Receipt Date: 20120502
  Transmission Date: 20120825
  Serious: Yes (Hospitalization, Other)
  Sender: FDA-Public Use
  Company Number: US-SANOFI-AVENTIS-2012SA031178

PATIENT
  Sex: Male

DRUGS (5)
  1. ASPIRIN [Suspect]
     Dates: start: 20090101
  2. PLAVIX [Suspect]
     Route: 048
     Dates: start: 20090101, end: 20120501
  3. PLAVIX [Suspect]
     Indication: STENT PLACEMENT
     Route: 048
     Dates: start: 20090101, end: 20120501
  4. PLAVIX [Suspect]
  5. PLAVIX [Suspect]

REACTIONS (3)
  - CHRONIC OBSTRUCTIVE PULMONARY DISEASE [None]
  - CHEST PAIN [None]
  - FEELING ABNORMAL [None]
